FAERS Safety Report 9456492 (Version 2)
Quarter: 2014Q1

REPORT INFORMATION
  Report Type: Report from Study
  Country: JP (occurrence: JP)
  Receive Date: 20130813
  Receipt Date: 20140122
  Transmission Date: 20141002
  Serious: Yes (Other)
  Sender: FDA-Public Use
  Company Number: JP-NAPPMUNDI-GBR-2013-0015358

PATIENT
  Age: 75 Year
  Sex: Male

DRUGS (9)
  1. OXYCODONE HYDROCHLORIDE [Suspect]
     Indication: PRODUCT USED FOR UNKNOWN INDICATION
     Dosage: 0.4166 MG, SINGLE
     Route: 042
     Dates: start: 20130614, end: 20130617
  2. OXYCODONE HYDROCHLORIDE [Suspect]
     Dosage: 0.2083 MG, SINGLE (RESCUE DOSE)
     Route: 042
     Dates: start: 20130617, end: 20130617
  3. OXYCODONE HYDROCHLORIDE [Suspect]
     Dosage: 0.2083 MG, CONTINUOUS
     Route: 042
     Dates: start: 20130617, end: 20130617
  4. OXYCODONE HYDROCHLORIDE [Suspect]
     Dosage: 0.2083 MG,THREE TIMES (RESCUE DOSE)
     Route: 042
     Dates: start: 20130616, end: 20130616
  5. OXYCODONE HYDROCHLORIDE [Suspect]
     Dosage: 0.4166 MG, CONTINUOUS
     Route: 042
     Dates: start: 20130615, end: 20130616
  6. OXYCODONE HYDROCHLORIDE [Suspect]
     Dosage: 0.2083 MG, SINGLE (RESCUE DOSE)
     Route: 042
     Dates: start: 20130614, end: 20130614
  7. OXYCODONE HYDROCHLORIDE [Suspect]
     Dosage: 0.2083 MG, CONTINUOUS
     Route: 042
     Dates: start: 20130614, end: 20130614
  8. OXYCODONE HYDROCHLORIDE [Suspect]
     Dosage: 0.4166 MG, CONTINUOUS
     Route: 042
     Dates: start: 20130613, end: 20130613
  9. DICLOFENAC SODIUM [Concomitant]
     Route: 065

REACTIONS (1)
  - Delirium [Recovered/Resolved]
